FAERS Safety Report 7740966-5 (Version None)
Quarter: 2011Q3

REPORT INFORMATION
  Report Type: 
  Country: None (occurrence: None)
  Receive Date: 20110909
  Receipt Date: 20110907
  Transmission Date: 20111222
  Serious: Yes (Hospitalization, Other)
  Sender: FDA-Public Use
  Company Number: JP-PFIZER INC-2011210217

PATIENT
  Age: 80 Year
  Sex: Female

DRUGS (4)
  1. TAGAMET [Concomitant]
     Dosage: UNK
     Route: 048
  2. HACHIMIJIO-GAN [Concomitant]
     Dosage: UNK
     Route: 048
  3. SHAKUYAKU-KANZO-TO [Concomitant]
     Dosage: UNK
     Route: 048
  4. LYRICA [Suspect]
     Dosage: 150 MG DAILY
     Route: 048
     Dates: start: 20110811

REACTIONS (1)
  - LOSS OF CONSCIOUSNESS [None]
